FAERS Safety Report 9018637 (Version 1)
Quarter: 2013Q1

REPORT INFORMATION
  Report Type: Report from Study
  Country: US (occurrence: US)
  Receive Date: 20130118
  Receipt Date: 20130118
  Transmission Date: 20140127
  Serious: Yes (Other)
  Sender: FDA-Public Use
  Company Number: US-NAPPMUNDI-USA-2013-0097614

PATIENT
  Sex: Male

DRUGS (1)
  1. OXYCONTIN (NDA 22-272) [Suspect]
     Indication: PRODUCT USED FOR UNKNOWN INDICATION
     Dosage: 160 MG, Q12H
     Route: 048

REACTIONS (10)
  - Brain neoplasm [Unknown]
  - Deafness [Unknown]
  - Unresponsive to stimuli [Unknown]
  - Paranasal cyst [Unknown]
  - Chronic sinusitis [Unknown]
  - Speech disorder [Unknown]
  - Syncope [Unknown]
  - Lethargy [Unknown]
  - Hypersensitivity [Unknown]
  - Dizziness [Unknown]
